FAERS Safety Report 12237064 (Version 1)
Quarter: 2016Q2

REPORT INFORMATION
  Report Type: Spontaneous
  Country: US (occurrence: None)
  Receive Date: 20160404
  Receipt Date: 20160404
  Transmission Date: 20160815
  Serious: Yes (Other)
  Sender: FDA-Public Use
  Company Number: None

PATIENT
  Age: 33 Year
  Sex: Male
  Weight: 99.79 kg

DRUGS (2)
  1. SUBOXONE/NALOXONE 8/2NG FILM [Concomitant]
  2. SUBOXONE [Suspect]
     Active Substance: BUPRENORPHINE HYDROCHLORIDE\NALOXONE HYDROCHLORIDE
     Indication: DRUG DEPENDENCE
     Dosage: 8MG/2MG 2 FILMS DAILY SUBLINGUAL
     Route: 060
     Dates: start: 201510, end: 20160330

REACTIONS (1)
  - Headache [None]

NARRATIVE: CASE EVENT DATE: 20160101
